FAERS Safety Report 15433736 (Version 1)
Quarter: 2018Q3

REPORT INFORMATION
  Report Type: Spontaneous
  Country: DE (occurrence: DE)
  Receive Date: 20180927
  Receipt Date: 20180927
  Transmission Date: 20181010
  Serious: Yes (Hospitalization, Other)
  Sender: FDA-Public Use
  Company Number: DE-AUROBINDO-AUR-APL-2018-047321

PATIENT
  Age: 44 Year
  Sex: Male
  Weight: 65 kg

DRUGS (1)
  1. MOXIFLOXACIN. [Suspect]
     Active Substance: MOXIFLOXACIN
     Indication: CYSTITIS NONINFECTIVE
     Dosage: 400 MILLIGRAM
     Route: 048
     Dates: start: 20180703

REACTIONS (4)
  - Circulatory collapse [Unknown]
  - Hallucination [Unknown]
  - Cardiac disorder [Unknown]
  - Intensive care [Not Recovered/Not Resolved]

NARRATIVE: CASE EVENT DATE: 201807
